FAERS Safety Report 21212495 (Version 1)
Quarter: 2022Q3

REPORT INFORMATION
  Report Type: Spontaneous
  Country: US (occurrence: None)
  Receive Date: 20220813
  Receipt Date: 20220813
  Transmission Date: 20221027
  Serious: No
  Sender: FDA-Public Use
  Company Number: None

PATIENT
  Age: 60 Year
  Sex: Female
  Weight: 116.1 kg

DRUGS (6)
  1. TRAZODONE [Suspect]
     Active Substance: TRAZODONE HYDROCHLORIDE
  2. TEMAZEPAM [Suspect]
     Active Substance: TEMAZEPAM
  3. Amitryptiline 75 mg [Concomitant]
  4. lamotrigine 15O mg [Concomitant]
  5. Zyrtec [Concomitant]
  6. FLONASE [Concomitant]
     Active Substance: FLUTICASONE PROPIONATE

REACTIONS (6)
  - Arthralgia [None]
  - Arthralgia [None]
  - Pain in extremity [None]
  - Arthritis [None]
  - Gait disturbance [None]
  - Back pain [None]
